FAERS Safety Report 8496085-6 (Version None)
Quarter: 2012Q3

REPORT INFORMATION
  Report Type: 
  Country: None (occurrence: None)
  Receive Date: 20120709
  Receipt Date: 20120629
  Transmission Date: 20120928
  Serious: Yes (Other)
  Sender: FDA-Public Use
  Company Number: CN-ASTRAZENECA-2012SE40685

PATIENT
  Age: 54 Year
  Sex: Female

DRUGS (2)
  1. SYMBICORT [Suspect]
     Route: 055
     Dates: start: 20110101
  2. ALBUTEROL SULATE [Suspect]
     Route: 065

REACTIONS (3)
  - CHEMICAL POISONING [None]
  - HAEMOPTYSIS [None]
  - WRONG TECHNIQUE IN DRUG USAGE PROCESS [None]
